FAERS Safety Report 20482396 (Version 2)
Quarter: 2022Q2

REPORT INFORMATION
  Report Type: Report from Study
  Country: US (occurrence: US)
  Receive Date: 20220217
  Receipt Date: 20220427
  Transmission Date: 20220721
  Serious: Yes (Other)
  Sender: FDA-Public Use
  Company Number: US-BIOGEN-2022BI01097575

PATIENT
  Sex: Male

DRUGS (1)
  1. TYSABRI [Suspect]
     Active Substance: NATALIZUMAB
     Indication: Multiple sclerosis
     Route: 065

REACTIONS (5)
  - Crohn^s disease [Unknown]
  - Memory impairment [Unknown]
  - Glaucoma [Unknown]
  - Ankylosing spondylitis [Unknown]
  - Central nervous system lesion [Unknown]
